FAERS Safety Report 13166968 (Version 1)
Quarter: 2017Q1

REPORT INFORMATION
  Report Type: Spontaneous
  Country: None (occurrence: US)
  Receive Date: 20170130
  Receipt Date: 20170130
  Transmission Date: 20170428
  Serious: Yes (Hospitalization)
  Sender: FDA-Public Use
  Company Number: None

PATIENT
  Age: 77 Year
  Sex: Male
  Weight: 76.3 kg

DRUGS (1)
  1. MEMANTINE HYDROCHLORIDE. [Suspect]
     Active Substance: MEMANTINE HYDROCHLORIDE
     Dates: end: 20170101

REACTIONS (13)
  - Septic shock [None]
  - Pulmonary mass [None]
  - Metastases to liver [None]
  - Lung consolidation [None]
  - Failure to thrive [None]
  - Adrenal disorder [None]
  - Back pain [None]
  - Lung neoplasm malignant [None]
  - Pleural effusion [None]
  - Malignant neoplasm progression [None]
  - Movement disorder [None]
  - Myalgia [None]
  - Metastases to bone [None]

NARRATIVE: CASE EVENT DATE: 20170101
